FAERS Safety Report 4376056-1 (Version None)
Quarter: 2004Q2

REPORT INFORMATION
  Report Type: 
  Country: None (occurrence: None)
  Receive Date: 20040611
  Receipt Date: 20040602
  Transmission Date: 20050107
  Serious: Yes (Hospitalization)
  Sender: FDA-Public Use
  Company Number: BR-MERCK-0406BRA00007

PATIENT

DRUGS (1)
  1. VIOXX [Suspect]
     Route: 065

REACTIONS (1)
  - SKIN INFLAMMATION [None]
